FAERS Safety Report 8268273-5 (Version None)
Quarter: 2012Q2

REPORT INFORMATION
  Report Type: 
  Country: None (occurrence: None)
  Receive Date: 20120409
  Receipt Date: 20120402
  Transmission Date: 20120825
  Serious: Yes (Life-Threatening, Hospitalization)
  Sender: FDA-Public Use
  Company Number: GXKR2012DE001368

PATIENT
  Sex: Male
  Weight: 81 kg

DRUGS (2)
  1. OXALIPLATIN [Suspect]
     Dosage: 42 MG/M2, RECURRENT CYCLE, START DATE UNCLEAR
     Route: 042
     Dates: start: 20120319, end: 20120319
  2. OXALIPLATIN [Suspect]
     Dosage: AT A REDUCED DOSE SINCE 9/10
     Route: 042

REACTIONS (3)
  - HYPERSENSITIVITY [None]
  - CHILLS [None]
  - CYANOSIS [None]
